FAERS Safety Report 26070411 (Version 1)
Quarter: 2025Q4

REPORT INFORMATION
  Report Type: Spontaneous
  Country: US (occurrence: None)
  Receive Date: 20251120
  Receipt Date: 20251120
  Transmission Date: 20260118
  Serious: Yes (Other)
  Sender: FDA-CTU
  Company Number: None

PATIENT
  Sex: Female

DRUGS (11)
  1. LENALIDOMIDE [Suspect]
     Active Substance: LENALIDOMIDE
     Indication: Plasma cell myeloma
     Dosage: FREQUENCY : DAILY;?
     Route: 048
     Dates: start: 20220618
  2. ASPIRIN TAB 325MG EC [Concomitant]
  3. ATORVASTATIN TAB 10MG [Concomitant]
  4. BERBERINE CAP COMPLEX [Concomitant]
  5. COLESEVELAM TAB 625MG [Concomitant]
  6. COLLAGEN CAP ULTRA [Concomitant]
  7. COQ10 CAP 100MG [Concomitant]
  8. CURCUMIN POW [Concomitant]
  9. DIMETHYL SOL SULFOXID [Concomitant]
  10. DOXYCYCL HYC TAB 100MG [Concomitant]
  11. ELECTROLYTE SOL [Concomitant]

REACTIONS (2)
  - Plasma cell myeloma [None]
  - Disease recurrence [None]
